FAERS Safety Report 18955167 (Version 3)
Quarter: 2021Q3

REPORT INFORMATION
  Report Type: Report from Study
  Country: CN (occurrence: CN)
  Receive Date: 20210301
  Receipt Date: 20210811
  Transmission Date: 20211014
  Serious: Yes (Hospitalization, Disabling)
  Sender: FDA-Public Use
  Company Number: CN-ROCHE-2773486

PATIENT
  Age: 33 Year
  Sex: Male
  Weight: 73 kg

DRUGS (2)
  1. EMICIZUMAB. [Suspect]
     Active Substance: EMICIZUMAB
     Indication: FACTOR VIII DEFICIENCY
     Dosage: ON 17/FEB/2021, HE RECEIVED THE LAST DOSE OF SUBCUTANEOUS EMICIZUMAB 0.73 MG PRIOR TO THE ONSET OF S
     Route: 058
     Dates: start: 20180710
  2. FACTOR VIII (ANTIHAEMOPHILIC FACTOR) [Concomitant]
     Active Substance: ANTIHEMOPHILIC FACTOR HUMAN
     Indication: HAEMOPHILIA

REACTIONS (1)
  - Haemophilic arthropathy [Not Recovered/Not Resolved]

NARRATIVE: CASE EVENT DATE: 20210218
